FAERS Safety Report 11099574 (Version 2)
Quarter: 2015Q3

REPORT INFORMATION
  Report Type: Spontaneous
  Country: BR (occurrence: BR)
  Receive Date: 20150508
  Receipt Date: 20150819
  Transmission Date: 20151125
  Serious: Yes (Hospitalization, Other)
  Sender: FDA-Public Use
  Company Number: BR-ABBVIE-15P-020-1388295-00

PATIENT
  Age: 82 Year
  Sex: Female
  Weight: 72 kg

DRUGS (5)
  1. SYNTHROID [Suspect]
     Active Substance: LEVOTHYROXINE SODIUM
     Indication: HYPOTHYROIDISM
     Dosage: DAILY DOSE: 125 MICROGRAM; IN FASTING
     Route: 048
     Dates: start: 2014, end: 2015
  2. ASPIRINA PREVENT [Concomitant]
     Active Substance: ASPIRIN
     Indication: CARDIAC DISORDER
     Dosage: 100 MILLIGRAM; AT NIGHT
     Route: 048
  3. SYNTHROID [Suspect]
     Active Substance: LEVOTHYROXINE SODIUM
     Dosage: DAILY DOSE: 112 MICROGRAM; IN FASTING
     Route: 048
     Dates: start: 20150414
  4. ENALAPRIL MALEATE. [Concomitant]
     Active Substance: ENALAPRIL MALEATE
     Indication: HEADACHE
     Dosage: 1 TABLET IF SHE HAS HEADACHE
     Route: 048
  5. VASOPRIL [Concomitant]
     Active Substance: FOSINOPRIL
     Indication: HEADACHE
     Dosage: 1 TABLET IF SHE HAS HEADACHE
     Route: 048
     Dates: start: 2005

REACTIONS (6)
  - Abdominal pain upper [Recovered/Resolved]
  - Drug dose omission [Unknown]
  - Abdominal pain [Recovered/Resolved]
  - Peripheral swelling [Recovered/Resolved]
  - Headache [Recovered/Resolved]
  - Gastrointestinal surgery [Recovered/Resolved]

NARRATIVE: CASE EVENT DATE: 201408
